FAERS Safety Report 21334486 (Version 1)
Quarter: 2022Q3

REPORT INFORMATION
  Report Type: Report from Study
  Country: DE (occurrence: DE)
  Receive Date: 20220914
  Receipt Date: 20220914
  Transmission Date: 20221027
  Serious: Yes (Hospitalization, Other)
  Sender: FDA-Public Use
  Company Number: DE-ABBVIE-22K-062-4356831-00

PATIENT
  Age: 69 Year
  Sex: Male

DRUGS (2)
  1. METHOTREXATE [Suspect]
     Active Substance: METHOTREXATE
     Indication: Product used for unknown indication
     Dosage: 20 MILLIGRAM, QW
     Route: 065
  2. RINVOQ [Suspect]
     Active Substance: UPADACITINIB
     Indication: Rheumatoid arthritis
     Dosage: 15 MILLIGRAM, QD
     Route: 048
     Dates: start: 20211020

REACTIONS (6)
  - Somatic symptom disorder [Recovered/Resolved]
  - Parkinson^s disease [Unknown]
  - Depression [Recovered/Resolved]
  - Pleural calcification [Unknown]
  - Goitre [Unknown]
  - Osteopenia [Unknown]

NARRATIVE: CASE EVENT DATE: 20220107
